FAERS Safety Report 10194374 (Version 3)
Quarter: 2015Q2

REPORT INFORMATION
  Report Type: Report from Study
  Country: BR (occurrence: BR)
  Receive Date: 20140526
  Receipt Date: 20150501
  Transmission Date: 20150821
  Serious: Yes (Hospitalization)
  Sender: FDA-Public Use
  Company Number: BR-BIOGENIDEC-2014BI003896

PATIENT
  Age: 47 Year
  Sex: Male

DRUGS (12)
  1. CARBAMAZEPINE. [Concomitant]
     Active Substance: CARBAMAZEPINE
  2. OMEPRAZOLE. [Concomitant]
     Active Substance: OMEPRAZOLE
     Route: 048
  3. AVONEX [Suspect]
     Active Substance: INTERFERON BETA-1A
     Indication: MULTIPLE SCLEROSIS
     Route: 030
     Dates: start: 20131218
  4. GABAPENTIN. [Concomitant]
     Active Substance: GABAPENTIN
  5. CAPTOPRIL. [Concomitant]
     Active Substance: CAPTOPRIL
     Route: 048
  6. ATENOLOL. [Concomitant]
     Active Substance: ATENOLOL
     Route: 048
  7. AMANTADINE [Concomitant]
     Active Substance: AMANTADINE
  8. ATORVASTATIN [Concomitant]
     Active Substance: ATORVASTATIN
  9. BEZAFIBRATE [Concomitant]
     Active Substance: BEZAFIBRATE
     Indication: HYPERCHOLESTEROLAEMIA
  10. PARACETAMOL [Concomitant]
     Active Substance: ACETAMINOPHEN
     Indication: MIGRAINE
  11. VITAMIN B COMPLEX [Concomitant]
     Active Substance: CYANOCOBALAMIN\DEXPANTHENOL\NIACINAMIDE\PYRIDOXINE HYDROCHLORIDE\RIBOFLAVIN 5^-PHOSPHATE SODIUM\THIAMINE HYDROCHLORIDE\VITAMIN B COMPLEX
  12. FOLIC ACID. [Concomitant]
     Active Substance: FOLIC ACID

REACTIONS (13)
  - Nervousness [Unknown]
  - Multiple sclerosis relapse [Not Recovered/Not Resolved]
  - Feeling cold [Recovered/Resolved]
  - Back pain [Recovered/Resolved]
  - Pain [Recovered/Resolved]
  - Heart rate decreased [Not Recovered/Not Resolved]
  - Headache [Recovered/Resolved]
  - Intentional product use issue [Unknown]
  - Memory impairment [Unknown]
  - Decreased appetite [Not Recovered/Not Resolved]
  - Pyrexia [Recovered/Resolved]
  - Pain in extremity [Unknown]
  - Decreased immune responsiveness [Not Recovered/Not Resolved]

NARRATIVE: CASE EVENT DATE: 20131218
